FAERS Safety Report 4359058-0 (Version None)
Quarter: 2004Q2

REPORT INFORMATION
  Report Type: 
  Country: None (occurrence: None)
  Receive Date: 20040517
  Receipt Date: 20040505
  Transmission Date: 20050107
  Serious: Yes (Other)
  Sender: FDA-Public Use
  Company Number: FR-ROCHE-366835

PATIENT
  Age: 48 Year
  Sex: Female

DRUGS (2)
  1. PEG-INTERFERON ALFA 2A (RO 25-8310) [Suspect]
     Route: 058
     Dates: end: 20040121
  2. GLEEVEC [Suspect]
     Route: 048
     Dates: start: 20030925, end: 20040124

REACTIONS (2)
  - CYTOLYTIC HEPATITIS [None]
  - LYMPHOPENIA [None]
